FAERS Safety Report 10024042 (Version 1)
Quarter: 2014Q1

REPORT INFORMATION
  Report Type: Spontaneous
  Country: US (occurrence: None)
  Receive Date: 20140304
  Receipt Date: 20140304
  Transmission Date: 20141002
  Serious: Yes (Other)
  Sender: FDA-Public Use
  Company Number: RB-39465-2012

PATIENT
  Age: 55 Year
  Sex: Female

DRUGS (2)
  1. SUBOXONE 8 MG [Suspect]
     Indication: DRUG DEPENDENCE
     Route: 060
     Dates: start: 201201, end: 201204
  2. SUBUTEX 8 MG [Suspect]
     Indication: DRUG DEPENDENCE
     Route: 060
     Dates: start: 201204

REACTIONS (9)
  - Gingival inflammation [None]
  - Tremor [None]
  - Hypersensitivity [None]
  - Drug withdrawal syndrome [None]
  - Vomiting [None]
  - Diarrhoea [None]
  - Pharyngeal oedema [None]
  - Dyspnoea [None]
  - Irritability [None]
